FAERS Safety Report 18231875 (Version 1)
Quarter: 2020Q3

REPORT INFORMATION
  Report Type: Spontaneous
  Country: US (occurrence: US)
  Receive Date: 20200903
  Receipt Date: 20200903
  Transmission Date: 20201103
  Serious: Yes (Hospitalization)
  Sender: FDA-Public Use
  Company Number: None

PATIENT
  Age: 71 Year
  Sex: Female

DRUGS (7)
  1. FLECAINIDE 50 MG [Concomitant]
     Active Substance: FLECAINIDE
  2. PRAVASTATIN 20 MG [Concomitant]
     Active Substance: PRAVASTATIN
  3. ELIQUIS [Concomitant]
     Active Substance: APIXABAN
  4. METOPROLOL TART 50 MG [Concomitant]
  5. RAYALDEE [Suspect]
     Active Substance: CALCIFEDIOL
     Indication: HYPERPARATHYROIDISM
     Route: 048
     Dates: start: 20200305
  6. RAYALDEE [Suspect]
     Active Substance: CALCIFEDIOL
     Indication: CHRONIC KIDNEY DISEASE
     Route: 048
     Dates: start: 20200305
  7. MONTELUKAST [Concomitant]
     Active Substance: MONTELUKAST SODIUM

REACTIONS (4)
  - Blood calcium decreased [None]
  - Atrial fibrillation [None]
  - Blood parathyroid hormone decreased [None]
  - Muscular weakness [None]

NARRATIVE: CASE EVENT DATE: 20200610
